FAERS Safety Report 8747119 (Version 2)
Quarter: 2012Q4

REPORT INFORMATION
  Report Type: Report from Study
  Country: US (occurrence: US)
  Receive Date: 20120827
  Receipt Date: 20120905
  Transmission Date: 20130627
  Serious: Yes (Hospitalization)
  Sender: FDA-Public Use
  Company Number: US-JNJFOC-20120810809

PATIENT
  Age: 11 None
  Sex: Male
  Weight: 26.7 kg

DRUGS (14)
  1. REMICADE [Suspect]
     Indication: CROHN^S DISEASE
     Route: 042
     Dates: start: 20111206
  2. REMICADE [Suspect]
     Indication: CROHN^S DISEASE
     Route: 042
  3. REMICADE [Suspect]
     Indication: CROHN^S DISEASE
     Route: 042
  4. METHOTREXATE [Suspect]
     Indication: CROHN^S DISEASE
     Dates: start: 20111204, end: 20120120
  5. MULTIVIT [Concomitant]
  6. FERROUS SULFATE [Concomitant]
  7. FOLIC ACID [Concomitant]
  8. CALCIUM CARBONATE [Concomitant]
  9. CHOLECALCIFEROL [Concomitant]
  10. HYDROCORTISONE [Concomitant]
  11. OXYCODONE/ACETAMINOPHEN [Concomitant]
  12. ACETAMINOPHEN [Concomitant]
  13. CEFDINIR [Concomitant]
  14. METRONIDAZOLE [Concomitant]

REACTIONS (2)
  - Crohn^s disease [Recovered/Resolved]
  - Malnutrition [Recovered/Resolved]
